FAERS Safety Report 5582832-X (Version None)
Quarter: 2008Q1

REPORT INFORMATION
  Report Type: 
  Country: None (occurrence: None)
  Receive Date: 20080107
  Receipt Date: 20080104
  Transmission Date: 20080703
  Serious: Yes (Death, Hospitalization)
  Sender: FDA-Public Use
  Company Number: AU-JNJFOC-20071202693

PATIENT
  Age: 75 Year
  Sex: Female

DRUGS (7)
  1. DOXORUBICIN HCL [Suspect]
     Indication: GLIOBLASTOMA MULTIFORME
     Dosage: ADMINISTERED ON DAY 1 OF 28 DAY CYCLE
     Route: 042
  2. TEMOZOLOMIDE [Suspect]
     Indication: GLIOBLASTOMA MULTIFORME
     Dosage: DAYS 1-5, 28 DAY CYCLE
     Route: 048
  3. KEPPRA [Concomitant]
     Indication: GLIOBLASTOMA MULTIFORME
     Route: 048
  4. ATORVASTATIN [Concomitant]
     Indication: DYSLIPIDAEMIA
     Dosage: NOCTE: EVERY NIGHT
     Route: 048
  5. RABEPRAZOLE SODIUM [Concomitant]
     Indication: GASTROOESOPHAGEAL REFLUX DISEASE
     Route: 048
  6. DEXAMETHASONE TAB [Concomitant]
     Indication: GLIOBLASTOMA MULTIFORME
     Route: 048
  7. PERINDOPRIL [Concomitant]
     Indication: HYPERTENSION
     Route: 048

REACTIONS (2)
  - PNEUMOCYSTIS JIROVECI PNEUMONIA [None]
  - PYREXIA [None]
